FAERS Safety Report 5926592-9 (Version None)
Quarter: 2008Q4

REPORT INFORMATION
  Report Type: 
  Country: None (occurrence: None)
  Receive Date: 20081022
  Receipt Date: 20081015
  Transmission Date: 20090506
  Serious: Yes (Other)
  Sender: FDA-Public Use
  Company Number: US-AVENTIS-200816997US

PATIENT
  Sex: Male

DRUGS (1)
  1. CARAC [Suspect]
     Dosage: DOSE: UNK
     Route: 061

REACTIONS (4)
  - ANAEMIA [None]
  - OFF LABEL USE [None]
  - OVERDOSE [None]
  - PERICARDIAL EFFUSION [None]
